FAERS Safety Report 4976352-0 (Version None)
Quarter: 2006Q2

REPORT INFORMATION
  Report Type: 
  Country: None (occurrence: None)
  Receive Date: 20060419
  Receipt Date: 20060328
  Transmission Date: 20061013
  Serious: Yes (Other)
  Sender: FDA-Public Use
  Company Number: US-SANOFI-SYNTHELABO-A03200601880

PATIENT
  Age: 53 Year
  Sex: Male

DRUGS (4)
  1. AMBIEN [Suspect]
     Indication: DRUG USE FOR UNKNOWN INDICATION
     Dosage: UNK
     Route: 048
  2. ALCOHOL [Suspect]
     Dosage: UNK
     Route: 048
  3. CELEXA [Suspect]
     Dosage: UNK
     Route: 048
  4. PHENTERMINE [Suspect]
     Dosage: UNK
     Route: 048

REACTIONS (9)
  - ALCOHOL POISONING [None]
  - BALANCE DISORDER [None]
  - DIZZINESS [None]
  - DYSARTHRIA [None]
  - GAIT DISTURBANCE [None]
  - IMPAIRED DRIVING ABILITY [None]
  - LACRIMATION INCREASED [None]
  - ROAD TRAFFIC ACCIDENT [None]
  - SLEEP WALKING [None]
